FAERS Safety Report 19925129 (Version 6)
Quarter: 2022Q2

REPORT INFORMATION
  Report Type: Spontaneous
  Country: CN (occurrence: CN)
  Receive Date: 20211006
  Receipt Date: 20220504
  Transmission Date: 20220721
  Serious: Yes (Other)
  Sender: FDA-Public Use
  Company Number: CN-PFIZER INC-202101094885

PATIENT
  Age: 41 Year
  Sex: Male

DRUGS (2)
  1. SUTENT [Suspect]
     Active Substance: SUNITINIB MALATE
     Indication: Renal cancer
     Dosage: 1 DF, CYCLIC (ONCE A DAY, 4 WEEKS ON, 2 WEEKS OFF)
     Route: 048
     Dates: start: 202105
  2. SUTENT [Suspect]
     Active Substance: SUNITINIB MALATE
     Indication: Renal cyst
     Dosage: 4 DF, DAILY (4 CAPSULES A DAY)
     Route: 048
     Dates: start: 2021

REACTIONS (17)
  - Toothache [Unknown]
  - White blood cell count decreased [Not Recovered/Not Resolved]
  - Swelling of eyelid [Not Recovered/Not Resolved]
  - Dysuria [Recovering/Resolving]
  - Yellow skin [Not Recovered/Not Resolved]
  - Hair colour changes [Not Recovered/Not Resolved]
  - Burning sensation [Unknown]
  - Abnormal faeces [Not Recovered/Not Resolved]
  - Frequent bowel movements [Not Recovered/Not Resolved]
  - Taste disorder [Not Recovered/Not Resolved]
  - Flatulence [Not Recovered/Not Resolved]
  - Eructation [Not Recovered/Not Resolved]
  - Nasopharyngitis [Not Recovered/Not Resolved]
  - Rash macular [Not Recovered/Not Resolved]
  - Gait inability [Unknown]
  - Pain in extremity [Unknown]
  - Skin exfoliation [Unknown]

NARRATIVE: CASE EVENT DATE: 20220125
